FAERS Safety Report 5155696-6 (Version None)
Quarter: 2006Q4

REPORT INFORMATION
  Report Type: 
  Country: None (occurrence: None)
  Receive Date: 20061114
  Receipt Date: 20061031
  Transmission Date: 20070319
  Serious: Yes (Other)
  Sender: FDA-Public Use
  Company Number: 2006134891

PATIENT
  Sex: Female

DRUGS (5)
  1. DILANTIN [Suspect]
     Indication: EPILEPSY
     Dosage: 150 MG (50 MG, 3 IN 1 D)
  2. DEPAKOTE [Suspect]
     Indication: EPILEPSY
  3. ALL OTHER THERAPEUTIC PRODUCTS (ALL OTHER THERAPEUTIC PRODUCTS) [Suspect]
  4. PHENOBARBITAL TAB [Concomitant]
  5. CLORAZEPATE (CLORAZEPATE DIPOTASSIUM) [Concomitant]

REACTIONS (10)
  - APHAGIA [None]
  - ASTHENIA [None]
  - BALANCE DISORDER [None]
  - BLOOD TEST ABNORMAL [None]
  - CONVULSION [None]
  - GINGIVAL HYPERTROPHY [None]
  - GINGIVAL PAIN [None]
  - GRAND MAL CONVULSION [None]
  - HAEMORRHAGE [None]
  - VOMITING [None]
